FAERS Safety Report 21089025 (Version 3)
Quarter: 2022Q3

REPORT INFORMATION
  Report Type: Spontaneous
  Country: CH (occurrence: CH)
  Receive Date: 20220715
  Receipt Date: 20220812
  Transmission Date: 20221027
  Serious: Yes (Death)
  Sender: FDA-Public Use
  Company Number: CH-BAYER-2022A098301

PATIENT

DRUGS (1)
  1. VITRAKVI [Suspect]
     Active Substance: LAROTRECTINIB
     Indication: Glioblastoma multiforme
     Dosage: 100 MG/M2, BID FIRST LINE
     Dates: start: 202202, end: 202203

REACTIONS (1)
  - Glioblastoma multiforme [Fatal]
